FAERS Safety Report 10068845 (Version 1)
Quarter: 2014Q2

REPORT INFORMATION
  Report Type: Spontaneous
  Country: TR (occurrence: TR)
  Receive Date: 20140409
  Receipt Date: 20140409
  Transmission Date: 20141212
  Serious: Yes (Other)
  Sender: FDA-Public Use
  Company Number: PHHY2014TR038552

PATIENT
  Age: 17 Year
  Sex: Male

DRUGS (5)
  1. METFORMIN [Suspect]
     Indication: HYPERGLYCAEMIA
  2. PREDNISONE [Suspect]
  3. VINCRISTINE [Concomitant]
  4. L-ASPARAGINASE [Concomitant]
  5. DAUNORUBICIN [Concomitant]

REACTIONS (5)
  - Haemolytic anaemia [Recovered/Resolved]
  - Jaundice [Recovered/Resolved]
  - Haemoglobin decreased [Recovered/Resolved]
  - Blood bilirubin unconjugated increased [Unknown]
  - Hyperglycaemia [Unknown]
